FAERS Safety Report 5346661-4 (Version None)
Quarter: 2007Q2

REPORT INFORMATION
  Report Type: 
  Country: None (occurrence: None)
  Receive Date: 20070604
  Receipt Date: 20070521
  Transmission Date: 20071010
  Serious: Yes (Other)
  Sender: FDA-Public Use
  Company Number: 2007VX001455

PATIENT
  Age: 2 Year
  Sex: Male
  Weight: 12 kg

DRUGS (2)
  1. FLURAZEPAM HYDROCHLORIDE [Suspect]
     Dosage: X1
     Dates: start: 20070518
  2. FLUNITRAZEPAM [Suspect]
     Dosage: X1
     Dates: start: 20070518

REACTIONS (1)
  - ACCIDENTAL DRUG INTAKE BY CHILD [None]
